FAERS Safety Report 5464801-3 (Version None)
Quarter: 2007Q3

REPORT INFORMATION
  Report Type: 
  Country: None (occurrence: None)
  Receive Date: 20070921
  Receipt Date: 20070910
  Transmission Date: 20080115
  Serious: Yes (Congenital Anomaly, Other)
  Sender: FDA-Public Use
  Company Number: PT-PFIZER INC-2007073948

PATIENT

DRUGS (4)
  1. LYRICA [Suspect]
     Dosage: DAILY DOSE:100MG
     Route: 048
     Dates: start: 20070101, end: 20070829
  2. NORMISON [Concomitant]
  3. CASTILIUM [Concomitant]
  4. METAMIDOL [Concomitant]

REACTIONS (3)
  - ABORTION INDUCED [None]
  - DRUG EXPOSURE DURING PREGNANCY [None]
  - MULTIPLE CONGENITAL ABNORMALITIES [None]
